FAERS Safety Report 16305964 (Version 2)
Quarter: 2021Q1

REPORT INFORMATION
  Report Type: Spontaneous
  Country: US (occurrence: US)
  Receive Date: 20190513
  Receipt Date: 20210105
  Transmission Date: 20210419
  Serious: Yes (Other)
  Sender: FDA-Public Use
  Company Number: US-ASTRAZENECA-2019SE66236

PATIENT
  Age: 18813 Day
  Sex: Male
  Weight: 90.7 kg

DRUGS (74)
  1. PRILOSEC [Suspect]
     Active Substance: OMEPRAZOLE MAGNESIUM
     Indication: DYSPEPSIA
     Route: 048
     Dates: start: 2000, end: 2018
  2. PEPCID OTC [Concomitant]
     Active Substance: FAMOTIDINE
     Dates: start: 2005
  3. ZANTAC [Concomitant]
     Active Substance: RANITIDINE HYDROCHLORIDE
     Dates: start: 2005
  4. NASONEX [Concomitant]
     Active Substance: MOMETASONE FUROATE
  5. BENZONATATE. [Concomitant]
     Active Substance: BENZONATATE
  6. ATORVASTATIN [Concomitant]
     Active Substance: ATORVASTATIN
  7. ALCOHOL. [Concomitant]
     Active Substance: ALCOHOL
  8. PRILOSEC [Suspect]
     Active Substance: OMEPRAZOLE MAGNESIUM
     Indication: DYSPEPSIA
     Dosage: GENERIC
     Route: 065
     Dates: start: 2015, end: 2018
  9. PANTOPRAZOLE [Suspect]
     Active Substance: PANTOPRAZOLE
     Indication: DYSPEPSIA
     Dosage: GENERIC40.0MG UNKNOWN
     Route: 065
     Dates: start: 201609, end: 201612
  10. FLONASE [Concomitant]
     Active Substance: FLUTICASONE PROPIONATE
     Indication: MULTIPLE ALLERGIES
  11. FERROUS SULFATE. [Concomitant]
     Active Substance: FERROUS SULFATE
  12. AMOXICILLIN. [Concomitant]
     Active Substance: AMOXICILLIN
  13. CELEXA [Concomitant]
     Active Substance: CITALOPRAM HYDROBROMIDE
  14. NAPROXEN. [Concomitant]
     Active Substance: NAPROXEN
  15. LEVETIRACETAM. [Concomitant]
     Active Substance: LEVETIRACETAM
  16. PSEUDOEPHEDRINE. [Concomitant]
     Active Substance: PSEUDOEPHEDRINE HYDROCHLORIDE
  17. PRILOSEC [Suspect]
     Active Substance: OMEPRAZOLE MAGNESIUM
     Indication: DYSPEPSIA
     Route: 048
     Dates: start: 2000, end: 2018
  18. BENADRYL [Concomitant]
     Active Substance: DIPHENHYDRAMINE HYDROCHLORIDE
     Indication: MULTIPLE ALLERGIES
     Dosage: AS NEEDED
  19. AMLODIPINE [Concomitant]
     Active Substance: AMLODIPINE BESYLATE
  20. BACTRIM [Concomitant]
     Active Substance: SULFAMETHOXAZOLE\TRIMETHOPRIM
  21. FLAGYL [Concomitant]
     Active Substance: METRONIDAZOLE\METRONIDAZOLE HYDROCHLORIDE
  22. LUNESTA [Concomitant]
     Active Substance: ESZOPICLONE
  23. VIAGRA [Concomitant]
     Active Substance: SILDENAFIL CITRATE
  24. HYDRALAZINE [Concomitant]
     Active Substance: HYDRALAZINE HYDROCHLORIDE
  25. AMITRIPTYLINE [Concomitant]
     Active Substance: AMITRIPTYLINE
  26. DOXEPIN [Concomitant]
     Active Substance: DOXEPIN
  27. PITAVASTATIN. [Concomitant]
     Active Substance: PITAVASTATIN CALCIUM
  28. MIRAPEX [Concomitant]
     Active Substance: PRAMIPEXOLE DIHYDROCHLORIDE
  29. AMLODIPINE BESYLATE. [Concomitant]
     Active Substance: AMLODIPINE BESYLATE
  30. NEXIUM [Suspect]
     Active Substance: ESOMEPRAZOLE MAGNESIUM
     Indication: DYSPEPSIA
     Route: 048
     Dates: start: 200001, end: 201012
  31. NEXIUM [Suspect]
     Active Substance: ESOMEPRAZOLE MAGNESIUM
     Indication: DYSPEPSIA
     Route: 048
     Dates: start: 2000, end: 2010
  32. FLUOXETINE [Concomitant]
     Active Substance: FLUOXETINE HYDROCHLORIDE
     Indication: AFFECTIVE DISORDER
     Dosage: 50.0MG UNKNOWN
  33. SALICYCLIC ACID [Concomitant]
     Active Substance: SALICYLIC ACID
  34. IBUPROFEN. [Concomitant]
     Active Substance: IBUPROFEN
  35. LABETALOL [Concomitant]
     Active Substance: LABETALOL\LABETALOL HYDROCHLORIDE
  36. NEXIUM [Suspect]
     Active Substance: ESOMEPRAZOLE MAGNESIUM
     Indication: DYSPEPSIA
     Route: 048
     Dates: start: 2000, end: 2010
  37. PRILOSEC [Suspect]
     Active Substance: OMEPRAZOLE MAGNESIUM
     Indication: DYSPEPSIA
     Route: 048
     Dates: start: 200001, end: 201012
  38. PRILOSEC [Suspect]
     Active Substance: OMEPRAZOLE MAGNESIUM
     Indication: DYSPEPSIA
     Dosage: GENERIC
     Route: 065
     Dates: start: 2015, end: 2018
  39. LISINOPRIL. [Concomitant]
     Active Substance: LISINOPRIL
     Indication: BLOOD PRESSURE ABNORMAL
     Dosage: 40.0MG UNKNOWN
  40. PREDNISONE. [Concomitant]
     Active Substance: PREDNISONE
     Indication: INFLAMMATION
     Dosage: 20.0MG UNKNOWN
  41. TRAMADOL. [Concomitant]
     Active Substance: TRAMADOL
     Indication: PAIN
     Dosage: 50.0MG UNKNOWN
  42. PEPTO?BISMOL [Concomitant]
     Active Substance: BISMUTH SUBSALICYLATE
     Dates: start: 2000
  43. INDOCIN [Concomitant]
     Active Substance: INDOMETHACIN
  44. ACETAMINOPHEN. [Concomitant]
     Active Substance: ACETAMINOPHEN
  45. NEXIUM [Suspect]
     Active Substance: ESOMEPRAZOLE MAGNESIUM
     Indication: DYSPEPSIA
     Route: 048
     Dates: start: 200001, end: 201012
  46. PRILOSEC [Suspect]
     Active Substance: OMEPRAZOLE MAGNESIUM
     Indication: DYSPEPSIA
     Route: 048
     Dates: start: 200001, end: 201012
  47. PANTOPRAZOLE [Suspect]
     Active Substance: PANTOPRAZOLE
     Indication: DYSPEPSIA
     Dosage: GENERIC40.0MG UNKNOWN
     Route: 065
     Dates: start: 201609, end: 201612
  48. GABAPENTIN. [Concomitant]
     Active Substance: GABAPENTIN
     Indication: NERVOUS SYSTEM DISORDER
  49. VITAMIN D [Concomitant]
     Active Substance: VITAMIN D NOS
     Indication: GENERAL PHYSICAL HEALTH DETERIORATION
     Dosage: AS NEEDED
  50. VITAMIN B12 [Concomitant]
     Active Substance: CYANOCOBALAMIN
     Indication: GENERAL PHYSICAL HEALTH DETERIORATION
     Dosage: AS NEEDED
  51. LANCETS [Concomitant]
     Active Substance: DEVICE
  52. ZOLPIDEM [Concomitant]
     Active Substance: ZOLPIDEM TARTRATE
  53. ARIPIPRAZOLE. [Concomitant]
     Active Substance: ARIPIPRAZOLE
  54. PNEUMOVAX 23 [Concomitant]
     Active Substance: PNEUMOCOCCAL VACCINE, POLYVALENT 23
  55. LORAZEPAM. [Concomitant]
     Active Substance: LORAZEPAM
     Indication: ANXIETY
     Dosage: 5.0MG UNKNOWN
  56. COLCHICINE. [Concomitant]
     Active Substance: COLCHICINE
     Indication: GOUT
     Dosage: 6.0MG UNKNOWN
  57. CLONIDINE HYDROCHLORIDE. [Concomitant]
     Active Substance: CLONIDINE HYDROCHLORIDE
  58. METOPROLOL TARTRATE. [Concomitant]
     Active Substance: METOPROLOL TARTRATE
  59. TRAZODONE [Concomitant]
     Active Substance: TRAZODONE HYDROCHLORIDE
  60. LASIX [Concomitant]
     Active Substance: FUROSEMIDE
  61. ETHYL ALCOHOL [Concomitant]
     Active Substance: ALCOHOL
  62. DIAZEPAM. [Concomitant]
     Active Substance: DIAZEPAM
  63. CARBAMAZEPINE. [Concomitant]
     Active Substance: CARBAMAZEPINE
  64. CHLORPROMAZINE. [Concomitant]
     Active Substance: CHLORPROMAZINE
  65. SERTRALINE [Concomitant]
     Active Substance: SERTRALINE HYDROCHLORIDE
  66. CLONIDINE. [Concomitant]
     Active Substance: CLONIDINE
     Indication: BLOOD PRESSURE ABNORMAL
     Dosage: 3.0MG UNKNOWN
  67. DOXAZOSIN [Concomitant]
     Active Substance: DOXAZOSIN MESYLATE
     Indication: BENIGN PROSTATIC HYPERPLASIA
     Dosage: 4.0MG UNKNOWN
  68. ALDACTONE [Concomitant]
     Active Substance: SPIRONOLACTONE
  69. ALLOPURINOL. [Concomitant]
     Active Substance: ALLOPURINOL
  70. TEKTURNA [Concomitant]
     Active Substance: ALISKIREN HEMIFUMARATE
  71. MOBIC [Concomitant]
     Active Substance: MELOXICAM
  72. TROPICAMIDE. [Concomitant]
     Active Substance: TROPICAMIDE
  73. OXYCODONE [Concomitant]
     Active Substance: OXYCODONE
  74. SHINGRIX [Concomitant]
     Active Substance: RECOMBINANT VARICELLA ZOSTER VIRUS (VZV) GLYCOPROTEIN E

REACTIONS (2)
  - Chronic kidney disease [Not Recovered/Not Resolved]
  - Renal failure [Unknown]

NARRATIVE: CASE EVENT DATE: 20190507
